FAERS Safety Report 8850299 (Version 1)
Quarter: 2012Q4

REPORT INFORMATION
  Report Type: 
  Country: BR (occurrence: BR)
  Receive Date: 20121019
  Receipt Date: 20121019
  Transmission Date: 20130627
  Serious: Yes (Hospitalization)
  Sender: FDA-Public Use
  Company Number: BR-ASTRAZENECA-2012SE73018

PATIENT
  Age: 819 Month
  Sex: Male

DRUGS (2)
  1. CRESTOR [Suspect]
     Indication: LIPIDS ABNORMAL
     Route: 048
     Dates: start: 2011, end: 2012
  2. CRESTOR [Suspect]
     Indication: LIPIDS ABNORMAL
     Route: 048

REACTIONS (2)
  - Venous occlusion [Recovered/Resolved]
  - Drug ineffective [Unknown]
